FAERS Safety Report 21748599 (Version 2)
Quarter: 2023Q1

REPORT INFORMATION
  Report Type: Spontaneous
  Country: GB (occurrence: GB)
  Receive Date: 20221219
  Receipt Date: 20230103
  Transmission Date: 20230417
  Serious: Yes (Life-Threatening, Hospitalization, Other)
  Sender: FDA-Public Use
  Company Number: GB-MHRA-MED-202212140807061220-CZFGR

PATIENT

DRUGS (2)
  1. NIRAPARIB [Suspect]
     Active Substance: NIRAPARIB
     Indication: Ovarian cancer
     Dosage: UNK
     Route: 065
     Dates: start: 20190901, end: 20221206
  2. BETAHISTINE [Concomitant]
     Active Substance: BETAHISTINE
     Indication: Vestibular neuronitis
     Dosage: UNK
     Route: 065

REACTIONS (29)
  - Diplopia [Not Recovered/Not Resolved]
  - Blood pressure increased [Not Recovered/Not Resolved]
  - Dizziness [Not Recovered/Not Resolved]
  - Confusional state [Not Recovered/Not Resolved]
  - Headache [Not Recovered/Not Resolved]
  - Seizure [Recovering/Resolving]
  - Discomfort [Unknown]
  - Diplopia [Not Recovered/Not Resolved]
  - Headache [Not Recovered/Not Resolved]
  - Seizure [Recovering/Resolving]
  - Contusion [Unknown]
  - Wound [Unknown]
  - Anxiety [Unknown]
  - Memory impairment [Unknown]
  - Carbohydrate antigen 125 increased [Unknown]
  - Paraesthesia [Unknown]
  - Pruritus [Unknown]
  - Feeling abnormal [Unknown]
  - Unresponsive to stimuli [Unknown]
  - Exophthalmos [Unknown]
  - Hypotonia [Unknown]
  - Vomiting [Unknown]
  - Somnolence [Unknown]
  - Asthenia [Unknown]
  - Staring [Unknown]
  - Metastases to central nervous system [Not Recovered/Not Resolved]
  - Hypophagia [Unknown]
  - Dysphagia [Unknown]
  - Balance disorder [Unknown]

NARRATIVE: CASE EVENT DATE: 20200601
